FAERS Safety Report 22817432 (Version 5)
Quarter: 2023Q4

REPORT INFORMATION
  Report Type: Report from Study
  Country: KR (occurrence: KR)
  Receive Date: 20230813
  Receipt Date: 20231214
  Transmission Date: 20240109
  Serious: Yes (Hospitalization, Other)
  Sender: FDA-Public Use
  Company Number: KR-JNJFOC-20211153103

PATIENT
  Age: 54 Year
  Sex: Male

DRUGS (10)
  1. SELEXIPAG [Suspect]
     Active Substance: SELEXIPAG
     Indication: Pulmonary arterial hypertension
     Route: 048
     Dates: start: 201810
  2. SELEXIPAG [Suspect]
     Active Substance: SELEXIPAG
     Dosage: TAKING HALF A PILL (10MG) 3 TIMES A DAY.
     Route: 048
  3. SELEXIPAG [Suspect]
     Active Substance: SELEXIPAG
     Route: 048
     Dates: start: 2020
  4. SELEXIPAG [Suspect]
     Active Substance: SELEXIPAG
     Route: 048
     Dates: start: 202102
  5. SELEXIPAG [Suspect]
     Active Substance: SELEXIPAG
     Route: 048
  6. SELEXIPAG [Suspect]
     Active Substance: SELEXIPAG
     Route: 048
  7. MACITENTAN [Suspect]
     Active Substance: MACITENTAN
     Indication: Pulmonary arterial hypertension
     Route: 048
     Dates: start: 2016
  8. ULTRACET [Suspect]
     Active Substance: ACETAMINOPHEN\TRAMADOL HYDROCHLORIDE
     Indication: Headache
     Route: 065
  9. SILDENAFIL CITRATE [Suspect]
     Active Substance: SILDENAFIL CITRATE
     Indication: Product used for unknown indication
     Route: 065
  10. ASPIRIN [Concomitant]
     Active Substance: ASPIRIN

REACTIONS (34)
  - SARS-CoV-2 test positive [Recovering/Resolving]
  - Panic disorder [Unknown]
  - Lung disorder [Unknown]
  - Cardiomegaly [Unknown]
  - Cardiac disorder [Not Recovered/Not Resolved]
  - Headache [Not Recovered/Not Resolved]
  - Abdominal pain upper [Recovering/Resolving]
  - Off label use [Unknown]
  - Incorrect dose administered [Unknown]
  - Dyspnoea [Recovered/Resolved]
  - Heart rate irregular [Not Recovered/Not Resolved]
  - Nausea [Unknown]
  - Initial insomnia [Unknown]
  - Dyspepsia [Recovered/Resolved]
  - Blood test abnormal [Unknown]
  - Weight increased [Unknown]
  - General physical condition abnormal [Unknown]
  - Weight decreased [Unknown]
  - General physical health deterioration [Unknown]
  - Pollakiuria [Unknown]
  - Pain in extremity [Unknown]
  - Stress [Unknown]
  - Fatigue [Unknown]
  - Insomnia [Unknown]
  - Flank pain [Unknown]
  - Asthenia [Unknown]
  - Lethargy [Unknown]
  - Paraesthesia [Unknown]
  - Diarrhoea [Unknown]
  - Nasopharyngitis [Unknown]
  - Arthralgia [Not Recovered/Not Resolved]
  - Myalgia [Not Recovered/Not Resolved]
  - Mood swings [Unknown]
  - Dizziness [Unknown]

NARRATIVE: CASE EVENT DATE: 20220101
